FAERS Safety Report 25659312 (Version 1)
Quarter: 2025Q3

REPORT INFORMATION
  Report Type: Spontaneous
  Country: CN (occurrence: CN)
  Receive Date: 20250808
  Receipt Date: 20250808
  Transmission Date: 20251020
  Serious: Yes (Other)
  Sender: BRACCO
  Company Number: CN-BRACCO-2025CN05355

PATIENT
  Age: 55 Year
  Sex: Male

DRUGS (3)
  1. SULFUR HEXAFLUORIDE [Suspect]
     Active Substance: SULFUR HEXAFLUORIDE
     Indication: Ultrasound liver
     Route: 042
     Dates: start: 20250731, end: 20250731
  2. SULFUR HEXAFLUORIDE [Suspect]
     Active Substance: SULFUR HEXAFLUORIDE
     Indication: Ultrasound liver
     Route: 042
     Dates: start: 20250731, end: 20250731
  3. SULFUR HEXAFLUORIDE [Suspect]
     Active Substance: SULFUR HEXAFLUORIDE
     Indication: Ultrasound liver
     Route: 042
     Dates: start: 20250731, end: 20250731

REACTIONS (3)
  - Seizure [Recovered/Resolved]
  - Bradycardia [Recovered/Resolved]
  - Discomfort [Recovered/Resolved]

NARRATIVE: CASE EVENT DATE: 20250731
